FAERS Safety Report 7951090-0 (Version None)
Quarter: 2011Q4

REPORT INFORMATION
  Report Type: 
  Country: None (occurrence: None)
  Receive Date: 20111123
  Receipt Date: 20111114
  Transmission Date: 20120403
  Serious: Yes (Other)
  Sender: FDA-Public Use
  Company Number: 2011-503

PATIENT
  Age: 54 Year
  Sex: Female
  Weight: 77.2 kg

DRUGS (2)
  1. PRIALT [Suspect]
     Dosage: 0.09 UG, ONCE/HOUR, INTRATHECAL
     Route: 037
     Dates: start: 20111020, end: 20111101
  2. METHADONE HCL [Concomitant]

REACTIONS (2)
  - CARDIAC FAILURE CONGESTIVE [None]
  - DIZZINESS [None]
